FAERS Safety Report 13646336 (Version 1)
Quarter: 2017Q2

REPORT INFORMATION
  Report Type: Report from Study
  Country: None (occurrence: US)
  Receive Date: 20170613
  Receipt Date: 20170613
  Transmission Date: 20170830
  Serious: Yes (Other)
  Sender: FDA-Public Use
  Company Number: US-ABBVIE-17K-163-2004218-00

PATIENT

DRUGS (1)
  1. HUMIRA [Suspect]
     Active Substance: ADALIMUMAB
     Indication: CROHN^S DISEASE
     Route: 058

REACTIONS (6)
  - Carpal tunnel syndrome [Unknown]
  - Abscess [Unknown]
  - Abdominal distension [Unknown]
  - Colectomy [Unknown]
  - Fistula [Unknown]
  - Injection site pain [Unknown]
